FAERS Safety Report 11911341 (Version 1)
Quarter: 2016Q1

REPORT INFORMATION
  Report Type: Spontaneous
  Country: US (occurrence: US)
  Receive Date: 20160112
  Receipt Date: 20160112
  Transmission Date: 20160526
  Serious: Yes (Other)
  Sender: FDA-Public Use
  Company Number: US-BAYER-2016-005628

PATIENT
  Age: 31 Year
  Sex: Female
  Weight: 125.3 kg

DRUGS (3)
  1. OCELLA [Suspect]
     Active Substance: DROSPIRENONE\ETHINYL ESTRADIOL
  2. YASMIN [Suspect]
     Active Substance: DROSPIRENONE\ETHINYL ESTRADIOL
  3. METHYLPREDNISOLONE. [Concomitant]
     Active Substance: METHYLPREDNISOLONE
     Dosage: 4 MG DOSE PACK
     Route: 048
     Dates: start: 20091005

REACTIONS (2)
  - Thrombophlebitis [None]
  - Deep vein thrombosis [None]

NARRATIVE: CASE EVENT DATE: 200910
